FAERS Safety Report 4475797-5 (Version None)
Quarter: 2004Q4

REPORT INFORMATION
  Report Type: 
  Country: None (occurrence: None)
  Receive Date: 20041015
  Receipt Date: 20041008
  Transmission Date: 20050328
  Serious: Yes (Hospitalization)
  Sender: FDA-Public Use
  Company Number: GB-GLAXOSMITHKLINE-B0347609A

PATIENT
  Age: 35 Year
  Sex: Female

DRUGS (1)
  1. IMIGRAN [Suspect]
     Route: 065

REACTIONS (1)
  - CARDIOVASCULAR DISORDER [None]
